FAERS Safety Report 9510266 (Version 2)
Quarter: 2013Q4

REPORT INFORMATION
  Report Type: Spontaneous
  Country: GB (occurrence: GB)
  Receive Date: 20130909
  Receipt Date: 20131108
  Transmission Date: 20140711
  Serious: Yes (Other)
  Sender: FDA-Public Use
  Company Number: GB-009507513-1309GBR000496

PATIENT
  Age: 73 Year
  Sex: Female

DRUGS (3)
  1. COSOPT 20 MG/ML + 5 MG/ML, EYE DROPS, SOLUTION [Suspect]
     Dosage: UNK
     Route: 047
     Dates: start: 20130826
  2. COSOPT 20 MG/ML + 5 MG/ML, EYE DROPS, SOLUTION [Suspect]
     Dosage: UNK
     Dates: start: 201302, end: 20130826
  3. ACETAMINOPHEN (+) CODEINE PHOSPHATE [Concomitant]

REACTIONS (3)
  - Superficial injury of eye [Unknown]
  - Drug dose omission [Unknown]
  - Product quality issue [Unknown]
